FAERS Safety Report 5381634-7 (Version None)
Quarter: 2007Q3

REPORT INFORMATION
  Report Type: 
  Country: None (occurrence: None)
  Receive Date: 20070709
  Receipt Date: 20070629
  Transmission Date: 20080115
  Serious: Yes (Other)
  Sender: FDA-Public Use
  Company Number: PHBS2007FR08379

PATIENT
  Age: 30 Year
  Sex: Female

DRUGS (5)
  1. PARLODEL [Suspect]
     Indication: PARKINSON'S DISEASE
     Dosage: 7.5 MG, TID
  2. MADOPAR [Suspect]
     Indication: PARKINSON'S DISEASE
     Dosage: 62.5 MG, TID
  3. CELESTENE [Concomitant]
     Dosage: 12 MG, QID
  4. SALBUTAMOL [Concomitant]
     Indication: UTERINE CONTRACTIONS DURING PREGNANCY
  5. ATOSIBAN [Concomitant]

REACTIONS (4)
  - CAESAREAN SECTION [None]
  - DRUG EXPOSURE DURING PREGNANCY [None]
  - PREMATURE LABOUR [None]
  - UTERINE CONTRACTIONS DURING PREGNANCY [None]
